APPROVED DRUG PRODUCT: ACTICLATE
Active Ingredient: DOXYCYCLINE HYCLATE
Strength: EQ 75MG BASE
Dosage Form/Route: TABLET;ORAL
Application: N205931 | Product #001 | TE Code: AB
Applicant: CHARTWELL RX SCIENCES LLC
Approved: Jul 25, 2014 | RLD: Yes | RS: No | Type: RX